FAERS Safety Report 10513080 (Version 7)
Quarter: 2015Q3

REPORT INFORMATION
  Report Type: Report from Study
  Country: GB (occurrence: GB)
  Receive Date: 20141013
  Receipt Date: 20150710
  Transmission Date: 20151125
  Serious: Yes (Hospitalization)
  Sender: FDA-Public Use
  Company Number: GB-ROCHE-1469976

PATIENT
  Age: 42 Year
  Sex: Male
  Weight: 102 kg

DRUGS (9)
  1. IBUPROFEN. [Concomitant]
     Active Substance: IBUPROFEN
     Route: 065
     Dates: start: 20140918
  2. DIPROSALIC [Concomitant]
     Active Substance: BETAMETHASONE DIPROPIONATE
     Route: 065
     Dates: start: 20120424
  3. VEMURAFENIB [Suspect]
     Active Substance: VEMURAFENIB
     Dosage: MOST RECENT DOSE PRIOR TO SERIOUS ADVERSE EVENT (SAE) : 30/SEP/2014
     Route: 048
     Dates: start: 20140911, end: 20141001
  4. CANDESARTAN CILEXETIL. [Concomitant]
     Active Substance: CANDESARTAN CILEXETIL
     Route: 065
     Dates: start: 20121119
  5. BETNOVATE [Concomitant]
     Active Substance: BETAMETHASONE
     Route: 065
     Dates: start: 20120522
  6. DERMOL [Concomitant]
     Active Substance: BENZALKONIUM CHLORIDE\CHLORHEXIDINE HYDROCHLORIDE\ISOPROPYL MYRISTATE\PARAFFIN
     Route: 065
     Dates: start: 20120522
  7. VEMURAFENIB [Suspect]
     Active Substance: VEMURAFENIB
     Indication: METASTATIC MALIGNANT MELANOMA
     Dosage: MOST RECENT DOSE PRIOR TO SERIOUS ADVERSE EVENT (SAE) : 17/SEP/2014
     Route: 048
     Dates: start: 20120209, end: 20141001
  8. COCODAMOL [Concomitant]
     Active Substance: ACETAMINOPHEN\CODEINE PHOSPHATE
     Dosage: 30/500 AS REQUIRED / MG
     Route: 065
     Dates: start: 201110
  9. GABAPENTIN. [Concomitant]
     Active Substance: GABAPENTIN
     Route: 065
     Dates: start: 20130919, end: 20140918

REACTIONS (2)
  - Pleural effusion [Recovered/Resolved]
  - Pericardial effusion [Recovered/Resolved with Sequelae]

NARRATIVE: CASE EVENT DATE: 20140918
